FAERS Safety Report 19337485 (Version 1)
Quarter: 2021Q2

REPORT INFORMATION
  Report Type: Spontaneous
  Country: US (occurrence: US)
  Receive Date: 20210530
  Receipt Date: 20210530
  Transmission Date: 20210717
  Serious: Yes (Other)
  Sender: FDA-Public Use
  Company Number: US-PURDUE-USA-2020-0210124

PATIENT
  Sex: Female

DRUGS (1)
  1. OXYCONTIN [Suspect]
     Active Substance: OXYCODONE HYDROCHLORIDE
     Indication: BACK PAIN
     Dosage: UNK
     Route: 048

REACTIONS (11)
  - Drug withdrawal syndrome [Unknown]
  - Injury [Unknown]
  - Drug abuse [Unknown]
  - Pain [Unknown]
  - Drug dependence [Unknown]
  - Malaise [Unknown]
  - Anxiety [Unknown]
  - General physical health deterioration [Unknown]
  - Mood swings [Unknown]
  - Emotional distress [Unknown]
  - Mental disorder [Unknown]
